FAERS Safety Report 7786556-X (Version None)
Quarter: 2011Q3

REPORT INFORMATION
  Report Type: 
  Country: None (occurrence: None)
  Receive Date: 20110929
  Receipt Date: 20110922
  Transmission Date: 20111222
  Serious: Yes (Other)
  Sender: FDA-Public Use
  Company Number: GB-GLAXOSMITHKLINE-B0749442A

PATIENT
  Sex: Female

DRUGS (2)
  1. CITALOPRAM HYDROBROMIDE [Suspect]
     Route: 048
  2. LAMOTRIGINE [Suspect]
     Indication: EPILEPSY

REACTIONS (2)
  - EPILEPSY [None]
  - DRUG INTERACTION [None]
